FAERS Safety Report 9091113 (Version 1)
Quarter: 2013Q1

REPORT INFORMATION
  Report Type: Report from Study
  Country: US (occurrence: US)
  Receive Date: 20130130
  Receipt Date: 20130130
  Transmission Date: 20140127
  Serious: No
  Sender: FDA-Public Use
  Company Number: US-ABBOTT-12P-163-0980969-00

PATIENT
  Age: 59 Year
  Sex: Female

DRUGS (6)
  1. HUMIRA [Suspect]
     Indication: RHEUMATOID ARTHRITIS
     Dates: start: 20111028
  2. IMURAN [Concomitant]
     Indication: RHEUMATOID ARTHRITIS
     Dosage: DAILY
     Route: 048
  3. TRAZODONE [Concomitant]
     Indication: DEPRESSION
     Dosage: AT BEDTIME
     Route: 048
  4. TRAZODONE [Concomitant]
     Indication: INSOMNIA
  5. KLONOPIN [Concomitant]
     Indication: ANXIETY
     Dosage: AT BEDTIME
     Route: 048
  6. KLONOPIN [Concomitant]
     Indication: INSOMNIA

REACTIONS (1)
  - Herpes zoster [Not Recovered/Not Resolved]
